FAERS Safety Report 6555095-6 (Version None)
Quarter: 2010Q1

REPORT INFORMATION
  Report Type: 
  Country: None (occurrence: None)
  Receive Date: 20100126
  Receipt Date: 20100126
  Transmission Date: 20100710
  Serious: Yes (Other)
  Sender: FDA-Public Use
  Company Number: None

PATIENT
  Sex: Male
  Weight: 61.4 kg

DRUGS (2)
  1. AMPHETAMINE SALTS (GENERIC FOR ADDERALL) 30 MG COREPHARMA LLC [Suspect]
     Indication: ATTENTION DEFICIT/HYPERACTIVITY DISORDER
     Dosage: 7.5MG(1/2) TABLET 3-4X DAILY ORALLY (047)
     Route: 048
     Dates: start: 20090101, end: 20100113
  2. AMPHETAMINE SALTS (GENERIC FOR ADDERALL) 30 MG COREPHARMA LLC [Suspect]
     Indication: ATTENTION DEFICIT/HYPERACTIVITY DISORDER
     Dosage: 7.5MG(1/2) TABLET 3-4X DAILY ORALLY (047)
     Route: 048
     Dates: start: 20090920

REACTIONS (4)
  - DRUG EFFECT DELAYED [None]
  - DRUG EFFECT INCREASED [None]
  - DRUG INEFFECTIVE [None]
  - PRODUCT SUBSTITUTION ISSUE [None]
